FAERS Safety Report 12675990 (Version 1)
Quarter: 2016Q3

REPORT INFORMATION
  Report Type: Spontaneous
  Country: US (occurrence: None)
  Receive Date: 20160822
  Receipt Date: 20160822
  Transmission Date: 20161109
  Serious: Yes (Life-Threatening, Other)
  Sender: FDA-Public Use
  Company Number: None

PATIENT
  Age: 35 Year
  Sex: Female
  Weight: 131.09 kg

DRUGS (12)
  1. INVOKAMET [Suspect]
     Active Substance: CANAGLIFLOZIN\METFORMIN HYDROCHLORIDE
     Indication: DIABETES MELLITUS
     Dosage: 60 TABLET(S) TWICE A DAY TAKEN BY MOUTH
     Route: 048
     Dates: start: 20160717, end: 20160811
  2. METFORMIN [Concomitant]
     Active Substance: METFORMIN HYDROCHLORIDE
  3. ALDACTONE [Concomitant]
     Active Substance: SPIRONOLACTONE
  4. HUMALOG [Concomitant]
     Active Substance: INSULIN LISPRO
  5. TRESIBA [Concomitant]
     Active Substance: INSULIN DEGLUDEC
  6. PHENERGAN [Concomitant]
     Active Substance: PROMETHAZINE HYDROCHLORIDE
  7. ACTOS [Concomitant]
     Active Substance: PIOGLITAZONE HYDROCHLORIDE
  8. TOPIRAMATE. [Concomitant]
     Active Substance: TOPIRAMATE
  9. LEXAPRO [Concomitant]
     Active Substance: ESCITALOPRAM OXALATE
  10. TRAZODONE [Concomitant]
     Active Substance: TRAZODONE HYDROCHLORIDE
  11. LOSARTAN. [Concomitant]
     Active Substance: LOSARTAN
  12. MAXALT [Concomitant]
     Active Substance: RIZATRIPTAN BENZOATE

REACTIONS (2)
  - Glycosylated haemoglobin increased [None]
  - Blood calcium increased [None]

NARRATIVE: CASE EVENT DATE: 20160804
